FAERS Safety Report 17636268 (Version 2)
Quarter: 2020Q2

REPORT INFORMATION
  Report Type: Spontaneous
  Country: AU (occurrence: AU)
  Receive Date: 20200407
  Receipt Date: 20200409
  Transmission Date: 20200713
  Serious: Yes (Hospitalization)
  Sender: FDA-Public Use
  Company Number: AU-MYLANLABS-2020M1034612

PATIENT
  Age: 58 Year
  Sex: Male

DRUGS (1)
  1. CLOZARIL [Suspect]
     Active Substance: CLOZAPINE
     Indication: SCHIZOPHRENIA
     Dosage: 350 MILLIGRAM
     Route: 048
     Dates: start: 20150714, end: 202004

REACTIONS (1)
  - Schizophrenia [Unknown]

NARRATIVE: CASE EVENT DATE: 202004
